FAERS Safety Report 7169249-1 (Version None)
Quarter: 2010Q4

REPORT INFORMATION
  Report Type: 
  Country: None (occurrence: None)
  Receive Date: 20101216
  Receipt Date: 20100108
  Transmission Date: 20110411
  Serious: Yes (Hospitalization, Other)
  Sender: FDA-Public Use
  Company Number: US-AMGEN-KDL384343

PATIENT

DRUGS (6)
  1. ENBREL [Suspect]
     Indication: PRODUCT USED FOR UNKNOWN INDICATION
     Dosage: 25 MG, 2 TIMES/WK
     Route: 058
     Dates: start: 20000101
  2. HYDROXYCHLOROQUINE SULFATE [Concomitant]
     Dosage: 200 MG, UNK
  3. CELECOXIB [Concomitant]
     Dosage: 200 MG, UNK
  4. LEFLUNOMIDE [Concomitant]
     Dosage: 20 MG, UNK
  5. FELODIPINE [Concomitant]
     Dosage: 5 MG, UNK
  6. CELEXA [Concomitant]
     Dosage: 20 MG, UNK

REACTIONS (4)
  - FALL [None]
  - OSTEOMYELITIS [None]
  - SKIN CANCER [None]
  - UPPER LIMB FRACTURE [None]
